FAERS Safety Report 22266130 (Version 1)
Quarter: 2023Q2

REPORT INFORMATION
  Report Type: Spontaneous
  Country: RS (occurrence: RS)
  Receive Date: 20230428
  Receipt Date: 20230428
  Transmission Date: 20230722
  Serious: Yes (Death)
  Sender: FDA-Public Use
  Company Number: RS-TEVA-2023-RS-2879815

PATIENT
  Age: 38 Year
  Sex: Male

DRUGS (2)
  1. LEVOFLOXACIN [Suspect]
     Active Substance: LEVOFLOXACIN
     Indication: C-reactive protein increased
     Route: 048
     Dates: start: 20230406, end: 20230406
  2. AZITHROMYCIN [Concomitant]
     Active Substance: AZITHROMYCIN
     Indication: Product used for unknown indication
     Dates: start: 20230405

REACTIONS (2)
  - Anaphylactic shock [Fatal]
  - Tracheostomy malfunction [Fatal]

NARRATIVE: CASE EVENT DATE: 20230406
